FAERS Safety Report 13867504 (Version 1)
Quarter: 2017Q3

REPORT INFORMATION
  Report Type: Spontaneous
  Country: GB (occurrence: GB)
  Receive Date: 20170814
  Receipt Date: 20170814
  Transmission Date: 20171127
  Serious: Yes (Other)
  Sender: FDA-Public Use
  Company Number: GB-BAUSCH-BL-2017-024026

PATIENT
  Age: 70 Year
  Sex: Female

DRUGS (1)
  1. METRONIDAZOLE. [Suspect]
     Active Substance: METRONIDAZOLE
     Indication: ORAL INFECTION
     Route: 048
     Dates: start: 20170724, end: 20170726

REACTIONS (10)
  - Chromaturia [Recovering/Resolving]
  - Fatigue [Recovering/Resolving]
  - Hypersomnia [Recovering/Resolving]
  - Tinnitus [Recovering/Resolving]
  - Pollakiuria [Recovering/Resolving]
  - Malaise [Recovering/Resolving]
  - Flushing [Recovering/Resolving]
  - Decreased appetite [Recovering/Resolving]
  - Nausea [Recovering/Resolving]
  - Headache [Recovering/Resolving]

NARRATIVE: CASE EVENT DATE: 20170724
